FAERS Safety Report 11011204 (Version 2)
Quarter: 2015Q3

REPORT INFORMATION
  Report Type: Spontaneous
  Country: JP (occurrence: JP)
  Receive Date: 20150410
  Receipt Date: 20150724
  Transmission Date: 20151125
  Serious: Yes (Other)
  Sender: FDA-Public Use
  Company Number: JP-009507513-1504JPN003024

PATIENT
  Sex: Male
  Weight: 70 kg

DRUGS (21)
  1. REBETOL [Suspect]
     Active Substance: RIBAVIRIN
     Dosage: 600 MG, ONCE A DAY
     Route: 048
     Dates: start: 20140530, end: 20140612
  2. PEGASYS [Suspect]
     Active Substance: PEGINTERFERON ALFA-2A
     Indication: CHRONIC HEPATITIS C
     Dosage: 180 MICROGRAM, ONCE A WEEK
     Route: 058
     Dates: start: 20140218, end: 2014
  3. SIMEPREVIR [Suspect]
     Active Substance: SIMEPREVIR
     Dosage: 100 MG, ONCE A DAY
     Route: 048
     Dates: start: 20140513, end: 20140612
  4. REBETOL [Suspect]
     Active Substance: RIBAVIRIN
     Dosage: 600 MG, ONCE A DAY
     Route: 048
     Dates: start: 20140415, end: 20140515
  5. NORVASC [Concomitant]
     Active Substance: AMLODIPINE BESYLATE
     Dosage: 2.5 MG,1 IN 1 DAY
     Route: 048
     Dates: start: 20131105
  6. CELECOX [Concomitant]
     Active Substance: CELECOXIB
     Dosage: 100 MG, 1 IN 1 DAY
     Route: 048
     Dates: start: 20131008
  7. LANSOPRAZOLE. [Concomitant]
     Active Substance: LANSOPRAZOLE
     Dosage: 15 MG, 1 IN 1 DAY
     Route: 048
     Dates: start: 20131008
  8. COPEGUS [Suspect]
     Active Substance: RIBAVIRIN
     Indication: CHRONIC HEPATITIS C
     Dosage: 800 MG, ONCE A DAY
     Route: 048
     Dates: start: 20140218, end: 2014
  9. SIMEPREVIR [Suspect]
     Active Substance: SIMEPREVIR
     Indication: CHRONIC HEPATITIS C
     Dosage: 100 MG, ONCE A DAY
     Route: 048
     Dates: start: 20140218
  10. REBETOL [Suspect]
     Active Substance: RIBAVIRIN
     Indication: CHRONIC HEPATITIS C
     Dosage: 600 MG, ONCE A DAY
     Route: 048
     Dates: start: 20140325, end: 20140407
  11. PEGINTRON [Suspect]
     Active Substance: PEGINTERFERON ALFA-2B
     Dosage: 50 MICROGRAM, 1 IN 1 WEEK
     Route: 058
     Dates: start: 20140415, end: 20140516
  12. REBETOL [Suspect]
     Active Substance: RIBAVIRIN
     Dosage: 800 MG, ONCE A DAY
     Route: 048
     Dates: start: 20140516, end: 20140522
  13. COPEGUS [Suspect]
     Active Substance: RIBAVIRIN
     Dosage: 800 MG, ONCE A DAY
     Route: 048
     Dates: start: 20140304, end: 20140310
  14. HALCION [Concomitant]
     Active Substance: TRIAZOLAM
     Indication: INSOMNIA
     Dosage: 0.25 MG, 1 IN 1 DAY
     Route: 048
     Dates: start: 20120204
  15. URSO [Concomitant]
     Active Substance: URSODIOL
     Dosage: 300 MG, 1 IN 1 DAY
     Route: 048
     Dates: start: 20131008
  16. PEGINTRON [Suspect]
     Active Substance: PEGINTERFERON ALFA-2B
     Indication: CHRONIC HEPATITIS C
     Dosage: 50 MICROGRAM, 1 IN 1 WEEK
     Route: 058
     Dates: start: 20140325, end: 2014
  17. PEGINTRON [Suspect]
     Active Substance: PEGINTERFERON ALFA-2B
     Dosage: 50 MICROGRAM, 1 IN 1 WEEK
     Route: 058
     Dates: start: 20140530, end: 20140606
  18. PEGASYS [Suspect]
     Active Substance: PEGINTERFERON ALFA-2A
     Dosage: 90 MICROGRAM, ONCE A WEEK
     Route: 058
     Dates: start: 20140304, end: 2014
  19. SIMEPREVIR [Suspect]
     Active Substance: SIMEPREVIR
     Dosage: 100 MG, ONCE A DAY
     Route: 048
     Dates: start: 20140325
  20. SIMEPREVIR [Suspect]
     Active Substance: SIMEPREVIR
     Dosage: 100 MG, ONCE A DAY
     Route: 048
     Dates: start: 20140415, end: 20140522
  21. GLYCYRON [Concomitant]
     Active Substance: AMMONIUM GLYCYRRHIZATE\GLYCINE\METHIONINE
     Dosage: 3 DOSES, 1 IN 1 DAY
     Route: 048
     Dates: start: 20131008

REACTIONS (3)
  - Helicobacter gastritis [Unknown]
  - Blood potassium decreased [Unknown]
  - Helicobacter infection [Unknown]

NARRATIVE: CASE EVENT DATE: 2014
